FAERS Safety Report 8998929 (Version 1)
Quarter: 2013Q1

REPORT INFORMATION
  Report Type: Spontaneous
  Country: BE (occurrence: BE)
  Receive Date: 20130103
  Receipt Date: 20130103
  Transmission Date: 20140127
  Serious: Yes (Other)
  Sender: FDA-Public Use
  Company Number: BE-SANOFI-AVENTIS-2012SA095215

PATIENT
  Age: 55 Year
  Sex: Male

DRUGS (3)
  1. DAONIL [Suspect]
     Indication: TYPE 2 DIABETES MELLITUS
     Dosage: 5 MG TAB-2-3 TABS/DAY
     Route: 048
     Dates: start: 201208
  2. GLUCOPHAGE [Concomitant]
  3. GALVUS [Concomitant]

REACTIONS (4)
  - Paralysis [Not Recovered/Not Resolved]
  - Swollen tongue [Not Recovered/Not Resolved]
  - Ageusia [Not Recovered/Not Resolved]
  - Myalgia [Not Recovered/Not Resolved]
